APPROVED DRUG PRODUCT: LOVASTATIN
Active Ingredient: LOVASTATIN
Strength: 10MG
Dosage Form/Route: TABLET;ORAL
Application: A077520 | Product #001
Applicant: SUN PHARMACEUTICAL INDUSTRIES INC
Approved: Apr 14, 2006 | RLD: No | RS: No | Type: DISCN